FAERS Safety Report 7979848-2 (Version None)
Quarter: 2011Q4

REPORT INFORMATION
  Report Type: 
  Country: None (occurrence: None)
  Receive Date: 20111214
  Receipt Date: 20111128
  Transmission Date: 20120403
  Serious: Yes (Other)
  Sender: FDA-Public Use
  Company Number: US-ROCHE-1016959

PATIENT
  Sex: Male
  Weight: 96.3 kg

DRUGS (1)
  1. VEMURAFENIB [Suspect]
     Indication: METASTATIC MALIGNANT MELANOMA
     Dosage: DATE OF MOST RECENT DOSE: 10/AUG/2011
     Route: 048
     Dates: start: 20110620

REACTIONS (1)
  - BLOOD LACTATE DEHYDROGENASE INCREASED [None]
